FAERS Safety Report 12506774 (Version 1)
Quarter: 2016Q2

REPORT INFORMATION
  Report Type: Spontaneous
  Country: PT (occurrence: PT)
  Receive Date: 20160628
  Receipt Date: 20160628
  Transmission Date: 20160815
  Serious: Yes (Other)
  Sender: FDA-Public Use
  Company Number: PT-BAUSCH-BL-2016-014885

PATIENT
  Age: 43 Year
  Sex: Female

DRUGS (6)
  1. BETAMETHASONE. [Concomitant]
     Active Substance: BETAMETHASONE
     Indication: ANTIRETROVIRAL THERAPY
     Dosage: SPORADIC
     Route: 061
  2. RALTEGRAVIR. [Concomitant]
     Active Substance: RALTEGRAVIR
     Indication: ANTIRETROVIRAL THERAPY
  3. RITONAVIR-BOOSTED DARUNAVIR [Concomitant]
     Active Substance: RITONAVIR
     Indication: ANTIRETROVIRAL THERAPY
  4. RITONAVIR. [Suspect]
     Active Substance: RITONAVIR
     Indication: HIV INFECTION
     Route: 065
     Dates: start: 2004
  5. BUDESONIDE. [Suspect]
     Active Substance: BUDESONIDE
     Indication: HIV INFECTION
     Dosage: MORE THAN 10 YEARS
     Route: 045
  6. LAMIVUDINE. [Concomitant]
     Active Substance: LAMIVUDINE
     Indication: ANTIRETROVIRAL THERAPY

REACTIONS (2)
  - Cushing^s syndrome [Recovering/Resolving]
  - Drug interaction [Recovering/Resolving]
